FAERS Safety Report 9619242 (Version 1)
Quarter: 2013Q4

REPORT INFORMATION
  Report Type: Report from Study
  Country: US (occurrence: US)
  Receive Date: 20131014
  Receipt Date: 20131014
  Transmission Date: 20140711
  Serious: Yes (Other)
  Sender: FDA-Public Use
  Company Number: US-SA-2013SA099374

PATIENT
  Age: 41 Year
  Sex: Male
  Weight: 105 kg

DRUGS (4)
  1. ELOXATIN [Suspect]
     Indication: ADENOCARCINOMA OF COLON
     Dosage: DOSE: OVER 2 HOURS ON DAY 1
     Route: 065
     Dates: start: 20130612, end: 20130612
  2. BLINDED THERAPY [Suspect]
     Indication: ADENOCARCINOMA OF COLON
     Route: 065
     Dates: start: 20130612
  3. FLUOROURACIL [Suspect]
     Indication: ADENOCARCINOMA OF COLON
     Dosage: DOSE: 46-48 HOURS ON DAY 1
     Route: 065
     Dates: start: 20130612
  4. LEUCOVORIN CALCIUM [Suspect]
     Indication: ADENOCARCINOMA OF COLON
     Dosage: DOSE: OVER 2 HOURS ON DAY 1
     Route: 065
     Dates: start: 20130612

REACTIONS (4)
  - Fall [Recovered/Resolved]
  - Laceration [Recovered/Resolved]
  - Hypersensitivity [Recovered/Resolved]
  - Hypotension [Recovered/Resolved]
